FAERS Safety Report 6972424-X (Version None)
Quarter: 2010Q3

REPORT INFORMATION
  Report Type: 
  Country: None (occurrence: None)
  Receive Date: 20100907
  Receipt Date: 20100827
  Transmission Date: 20110219
  Serious: Yes (Hospitalization)
  Sender: FDA-Public Use
  Company Number: WWISSUE-489

PATIENT
  Sex: Male

DRUGS (1)
  1. LISINOPRIL [Suspect]

REACTIONS (1)
  - DRUG HYPERSENSITIVITY [None]
